FAERS Safety Report 20745014 (Version 2)
Quarter: 2022Q3

REPORT INFORMATION
  Report Type: Spontaneous
  Country: JP (occurrence: JP)
  Receive Date: 20220425
  Receipt Date: 20220902
  Transmission Date: 20221027
  Serious: Yes (Other)
  Sender: FDA-Public Use
  Company Number: JP-TAKEDA-2022TJP040383

PATIENT

DRUGS (2)
  1. ZEJULA [Suspect]
     Active Substance: NIRAPARIB
     Indication: Ovarian cancer
     Dosage: 200 MILLIGRAM, QD
     Route: 048
     Dates: start: 20220303, end: 20220322
  2. ZEJULA [Suspect]
     Active Substance: NIRAPARIB
     Dosage: 100 MILLIGRAM, QD
     Route: 048
     Dates: start: 20220323

REACTIONS (2)
  - Renal impairment [Recovered/Resolved]
  - Nausea [Not Recovered/Not Resolved]

NARRATIVE: CASE EVENT DATE: 20220323
